FAERS Safety Report 4424493-9 (Version None)
Quarter: 2004Q3

REPORT INFORMATION
  Report Type: 
  Country: None (occurrence: None)
  Receive Date: 20040812
  Receipt Date: 20040810
  Transmission Date: 20050211
  Serious: Yes (Hospitalization)
  Sender: FDA-Public Use
  Company Number: FR-GLAXOSMITHKLINE-B0342055A

PATIENT
  Age: 4 Year
  Sex: Male

DRUGS (6)
  1. CEFUROXIME AXETIL [Suspect]
     Route: 048
     Dates: start: 20040623, end: 20040626
  2. VOLTARENE (DICLOFENAC) [Suspect]
     Route: 065
     Dates: start: 20040623, end: 20040626
  3. MUCICLAR [Suspect]
     Route: 048
     Dates: start: 20040621
  4. RHINOFLUIMUCIL [Suspect]
     Route: 045
     Dates: start: 20040623, end: 20040626
  5. ADVIL [Suspect]
     Route: 048
     Dates: start: 20040621, end: 20040623
  6. ACETAMINOPHEN [Suspect]
     Route: 065
     Dates: start: 20040621

REACTIONS (8)
  - CHEST PAIN [None]
  - COUGH [None]
  - DYSPNOEA [None]
  - GENERAL PHYSICAL HEALTH DETERIORATION [None]
  - NASAL FLARING [None]
  - OTORRHOEA [None]
  - PLEURISY [None]
  - PNEUMONIA PNEUMOCOCCAL [None]
